FAERS Safety Report 4899568-0 (Version None)
Quarter: 2006Q1

REPORT INFORMATION
  Report Type: 
  Country: None (occurrence: None)
  Receive Date: 20060118
  Receipt Date: 20050628
  Transmission Date: 20060701
  Serious: No
  Sender: FDA-Public Use
  Company Number: 2005001238

PATIENT
  Age: 77 Year
  Sex: Male

DRUGS (5)
  1. TARCEVA [Suspect]
     Indication: NON-SMALL CELL LUNG CANCER
     Dosage: 150 MG (QD), ORAL
     Route: 048
     Dates: start: 20050205
  2. COUMADIN [Concomitant]
  3. AMIODARONE (AMIODARONE) [Concomitant]
  4. BUMEX [Concomitant]
  5. TOPROL-XL [Concomitant]

REACTIONS (2)
  - DIABETIC FOOT [None]
  - IMPAIRED HEALING [None]
